FAERS Safety Report 13938128 (Version 2)
Quarter: 2018Q1

REPORT INFORMATION
  Report Type: Spontaneous
  Country: US (occurrence: US)
  Receive Date: 20170905
  Receipt Date: 20180208
  Transmission Date: 20180508
  Serious: Yes (Other)
  Sender: FDA-Public Use
  Company Number: US-PFIZER INC-2017379955

PATIENT
  Age: 75 Year
  Sex: Female

DRUGS (9)
  1. VENLAFAXINE HCL [Suspect]
     Active Substance: VENLAFAXINE HYDROCHLORIDE
     Indication: NEUROPATHY PERIPHERAL
     Dosage: 225 MG, UNK
     Dates: start: 201306, end: 201310
  2. DULOXETINE HYDROCHLORIDE. [Suspect]
     Active Substance: DULOXETINE HYDROCHLORIDE
     Indication: SMALL FIBRE NEUROPATHY
     Dosage: 120 MG, UNK
     Dates: start: 201506
  3. ESCITALOPRAM [Concomitant]
     Active Substance: ESCITALOPRAM OXALATE
     Dosage: 10 MG, UNK
     Dates: start: 201508
  4. DULOXETINE. [Suspect]
     Active Substance: DULOXETINE
     Indication: DEPRESSION
     Dosage: 40 MG, UNK
  5. DULOXETINE. [Suspect]
     Active Substance: DULOXETINE
     Dosage: 60 MG, UNK
     Dates: start: 201603
  6. VENLAFAXINE HCL [Suspect]
     Active Substance: VENLAFAXINE HYDROCHLORIDE
     Indication: SMALL FIBRE NEUROPATHY
  7. DULOXETINE HYDROCHLORIDE. [Suspect]
     Active Substance: DULOXETINE HYDROCHLORIDE
     Indication: DEPRESSION
     Dosage: 90 MG, 1X/DAY
     Dates: start: 2015
  8. DULOXETINE HYDROCHLORIDE. [Suspect]
     Active Substance: DULOXETINE HYDROCHLORIDE
     Indication: NEUROPATHY PERIPHERAL
     Dosage: UNK, (30 MG-60 MG (FINE) 120 MG (SEVERE REACTION)
     Dates: start: 201501, end: 201508
  9. VENLAFAXINE HCL [Suspect]
     Active Substance: VENLAFAXINE HYDROCHLORIDE
     Indication: DEPRESSION
     Dosage: 225 MG, DAILY
     Dates: start: 2013

REACTIONS (3)
  - Panic attack [Recovered/Resolved]
  - Depression [Recovered/Resolved]
  - Insomnia [Recovered/Resolved]

NARRATIVE: CASE EVENT DATE: 2013
